FAERS Safety Report 9302958 (Version 2)
Quarter: 2013Q2

REPORT INFORMATION
  Report Type: Spontaneous
  Country: DE (occurrence: None)
  Receive Date: 20130516
  Receipt Date: 20130522
  Transmission Date: 20140414
  Serious: Yes (Congenital Anomaly, Other)
  Sender: FDA-Public Use
  Company Number: AUR-APL-2013-04025

PATIENT
  Sex: Male
  Weight: 3.18 kg

DRUGS (3)
  1. RAMIPRIL (RAMIPRIL) [Suspect]
     Indication: HYPERTENSION
     Route: 064
     Dates: start: 20111227, end: 20120227
  2. L-THYROXIN [Concomitant]
  3. VELNATAL PLUS (VELNATAL PLUS) [Concomitant]

REACTIONS (11)
  - Ventricular septal defect [None]
  - Maternal drugs affecting foetus [None]
  - Caesarean section [None]
  - Foetal heart rate deceleration [None]
  - Pneumonia [None]
  - Pneumothorax [None]
  - Neonatal aspiration [None]
  - Patent ductus arteriosus [None]
  - Atrial septal defect [None]
  - Talipes [None]
  - Obstructed labour [None]
